FAERS Safety Report 7214730-X (Version None)
Quarter: 2011Q1

REPORT INFORMATION
  Report Type: 
  Country: None (occurrence: None)
  Receive Date: 20110107
  Receipt Date: 20100108
  Transmission Date: 20110831
  Serious: No
  Sender: FDA-Public Use
  Company Number: A0838503A

PATIENT
  Age: 78 Year
  Sex: Male

DRUGS (3)
  1. STATINS [Concomitant]
  2. MULTIVITAMIN [Concomitant]
  3. LOVAZA [Suspect]
     Dosage: 2CAP TWICE PER DAY
     Route: 048
     Dates: start: 20091001

REACTIONS (4)
  - CHOKING SENSATION [None]
  - ILL-DEFINED DISORDER [None]
  - FOREIGN BODY [None]
  - DYSPHAGIA [None]
